FAERS Safety Report 8610743-1 (Version None)
Quarter: 2012Q3

REPORT INFORMATION
  Report Type: 
  Country: None (occurrence: None)
  Receive Date: 20120822
  Receipt Date: 20120815
  Transmission Date: 20120928
  Serious: Yes (Other)
  Sender: FDA-Public Use
  Company Number: CN-JNJFOC-20120810233

PATIENT

DRUGS (3)
  1. SPORANOX [Suspect]
     Route: 041
  2. SPORANOX [Suspect]
     Indication: PULMONARY MYCOSIS
     Route: 041
  3. ITRACONAZOLE [Suspect]
     Indication: PULMONARY MYCOSIS
     Route: 048

REACTIONS (7)
  - VOMITING [None]
  - HEADACHE [None]
  - DRUG INEFFECTIVE [None]
  - PYREXIA [None]
  - JAUNDICE [None]
  - RASH [None]
  - NAUSEA [None]
